FAERS Safety Report 25311919 (Version 2)
Quarter: 2025Q2

REPORT INFORMATION
  Report Type: Report from Study
  Country: AU (occurrence: AU)
  Receive Date: 20250514
  Receipt Date: 20250605
  Transmission Date: 20250717
  Serious: Yes (Other)
  Sender: Unknown Manufacturer
  Company Number: AU-MIRUM PHARMACEUTICALS, INC.-AU-MIR-25-00257

PATIENT

DRUGS (1)
  1. MARALIXIBAT CHLORIDE [Suspect]
     Active Substance: MARALIXIBAT CHLORIDE
     Indication: Alagille syndrome
     Route: 048
     Dates: start: 20220317

REACTIONS (2)
  - Alagille syndrome [Unknown]
  - Condition aggravated [Unknown]
